FAERS Safety Report 4805738-X (Version None)
Quarter: 2005Q4

REPORT INFORMATION
  Report Type: 
  Country: None (occurrence: None)
  Receive Date: 20051021
  Receipt Date: 20051011
  Transmission Date: 20060501
  Serious: Yes (Hospitalization)
  Sender: FDA-Public Use
  Company Number: JP-ROCHE-420700

PATIENT
  Age: 81 Year
  Sex: Female

DRUGS (5)
  1. PANALDINE [Suspect]
     Indication: THROMBOSIS PROPHYLAXIS
     Dosage: INDICATION REPORTED AS ^THROMBOSIS PROPHYLAXIS / STENT PLACEMENT / ACUTE MYOCARDIAL INFARCTION^.
     Route: 048
     Dates: start: 20050813, end: 20050908
  2. ASPIRIN [Concomitant]
     Route: 048
  3. SIGMART [Concomitant]
  4. ISOSORBIDE MONONITRATE [Concomitant]
     Route: 048
  5. BLOPRESS [Concomitant]
     Route: 048

REACTIONS (2)
  - BLOOD LACTATE DEHYDROGENASE INCREASED [None]
  - HAEMOLYTIC ANAEMIA [None]
